FAERS Safety Report 4633699-5 (Version None)
Quarter: 2005Q2

REPORT INFORMATION
  Report Type: 
  Country: None (occurrence: None)
  Receive Date: 20050331
  Receipt Date: 20050110
  Transmission Date: 20051028
  Serious: Yes (Life-Threatening, Hospitalization)
  Sender: FDA-Public Use
  Company Number: 200510176BCC

PATIENT
  Age: 38 Year
  Sex: Female
  Weight: 58.0604 kg

DRUGS (2)
  1. ALEVE [Suspect]
  2. HUMULIN [Concomitant]

REACTIONS (9)
  - ANAPHYLACTIC REACTION [None]
  - BURNING SENSATION [None]
  - DYSPHAGIA [None]
  - DYSPNOEA [None]
  - OEDEMA PERIPHERAL [None]
  - PARAESTHESIA [None]
  - SWELLING FACE [None]
  - SWOLLEN TONGUE [None]
  - THROAT TIGHTNESS [None]
